FAERS Safety Report 15622623 (Version 1)
Quarter: 2018Q4

REPORT INFORMATION
  Report Type: Spontaneous
  Country: ES (occurrence: ES)
  Receive Date: 20181115
  Receipt Date: 20181115
  Transmission Date: 20190205
  Serious: Yes (Other)
  Sender: FDA-Public Use
  Company Number: ES-TEVA-2018-ES-974748

PATIENT
  Age: 70 Year
  Sex: Male
  Weight: 66.6 kg

DRUGS (2)
  1. IBUPROFENO (1769A) [Suspect]
     Active Substance: IBUPROFEN
     Indication: TOOTHACHE
     Route: 048
     Dates: start: 20180920, end: 20180924
  2. AMOXICILINA/ACIDO CLAVULANICO CINFA 500 MG /125 MG POLVO PARA SUSPENSI [Suspect]
     Active Substance: AMOXICILLIN\CLAVULANIC ACID
     Indication: TOOTHACHE
     Route: 048
     Dates: start: 20180920, end: 20180929

REACTIONS (2)
  - Localised oedema [Recovering/Resolving]
  - Tongue oedema [Recovering/Resolving]

NARRATIVE: CASE EVENT DATE: 201809
